FAERS Safety Report 19305706 (Version 1)
Quarter: 2021Q2

REPORT INFORMATION
  Report Type: Spontaneous
  Country: US (occurrence: US)
  Receive Date: 20210526
  Receipt Date: 20210526
  Transmission Date: 20210717
  Serious: Yes (Other)
  Sender: FDA-Public Use
  Company Number: US-DRREDDYS-USA/USA/21/0135796

PATIENT
  Age: 3 Year
  Sex: Female

DRUGS (3)
  1. TOPOTECAN HYDROCHLORIDE FOR INJECTION [Suspect]
     Active Substance: TOPOTECAN HYDROCHLORIDE
     Indication: ATYPICAL TERATOID/RHABDOID TUMOUR OF CNS
     Route: 037
  2. THIOTEPA FOR INJECTION [Suspect]
     Active Substance: THIOTEPA
     Indication: ATYPICAL TERATOID/RHABDOID TUMOUR OF CNS
     Route: 037
  3. ETOPOSIDE. [Suspect]
     Active Substance: ETOPOSIDE
     Indication: ATYPICAL TERATOID/RHABDOID TUMOUR OF CNS
     Route: 037

REACTIONS (1)
  - Myelodysplastic syndrome [Unknown]
